FAERS Safety Report 20422351 (Version 3)
Quarter: 2023Q1

REPORT INFORMATION
  Report Type: Report from Study
  Country: US (occurrence: US)
  Receive Date: 20220203
  Receipt Date: 20230220
  Transmission Date: 20230417
  Serious: No
  Sender: FDA-Public Use
  Company Number: US-AURINIA PHARMACEUTICALS INC.-AUR-000620

PATIENT
  Age: 40 Year
  Sex: Female

DRUGS (8)
  1. LUPKYNIS [Suspect]
     Active Substance: VOCLOSPORIN
     Indication: Lupus nephritis
     Dosage: 23.7 MILLIGRAM, BID
     Route: 048
     Dates: start: 202108
  2. LUPKYNIS [Suspect]
     Active Substance: VOCLOSPORIN
     Dosage: 23.7 MILLIGRAM, BID
     Route: 048
     Dates: start: 20211101, end: 20211126
  3. LUPKYNIS [Suspect]
     Active Substance: VOCLOSPORIN
     Dosage: 23.7 MILLIGRAM, BID
     Route: 048
     Dates: start: 20211129
  4. LUPKYNIS [Suspect]
     Active Substance: VOCLOSPORIN
     Dosage: 23.7 MILLIGRAM, BID
     Route: 048
     Dates: start: 20211102
  5. CELLCEPT [Suspect]
     Active Substance: MYCOPHENOLATE MOFETIL
     Indication: Lupus nephritis
     Dosage: UNK
  6. CELLCEPT [Suspect]
     Active Substance: MYCOPHENOLATE MOFETIL
     Dosage: 3000 MILLIGRAM, QD
  7. CELLCEPT [Suspect]
     Active Substance: MYCOPHENOLATE MOFETIL
     Dosage: 1500 MILLIGRAM, BID
  8. ROSUVASTATIN [Concomitant]
     Active Substance: ROSUVASTATIN
     Indication: Product used for unknown indication
     Dosage: UNK

REACTIONS (21)
  - Pollakiuria [Unknown]
  - Asthenia [Unknown]
  - Dyspnoea [Unknown]
  - Aspartate aminotransferase increased [Unknown]
  - Nasal ulcer [Unknown]
  - Depression [Unknown]
  - Pain in extremity [Unknown]
  - Anxiety [Unknown]
  - Generalised oedema [Unknown]
  - Swelling face [Not Recovered/Not Resolved]
  - Joint swelling [Unknown]
  - Dermatitis contact [Unknown]
  - Hidradenitis [Unknown]
  - Inflammation [Unknown]
  - Systemic lupus erythematosus rash [Unknown]
  - Blood pressure increased [Unknown]
  - Diarrhoea [Unknown]
  - Fatigue [Unknown]
  - Illness [Unknown]
  - Product packaging difficult to open [Unknown]
  - Product dose omission issue [Unknown]

NARRATIVE: CASE EVENT DATE: 20210801
